FAERS Safety Report 19579092 (Version 1)
Quarter: 2021Q3

REPORT INFORMATION
  Report Type: Report from Study
  Country: US (occurrence: US)
  Receive Date: 20210720
  Receipt Date: 20210720
  Transmission Date: 20211014
  Serious: Yes (Other)
  Sender: FDA-Public Use
  Company Number: US-SA-2021SA234011

PATIENT
  Age: 66 Year
  Sex: Female

DRUGS (2)
  1. NO STUDY DRUG GIVEN MKT [Suspect]
     Active Substance: UNSPECIFIED INGREDIENT
     Dosage: UNK
  2. ELITEK [Suspect]
     Active Substance: RASBURICASE
     Indication: BLOOD URIC ACID ABNORMAL
     Dosage: 2 MG X 1 DAYS
     Dates: start: 2021

REACTIONS (2)
  - Tumour lysis syndrome [Unknown]
  - Incorrect dosage administered [Unknown]

NARRATIVE: CASE EVENT DATE: 2021
